FAERS Safety Report 11987604 (Version 1)
Quarter: 2016Q1

REPORT INFORMATION
  Report Type: Spontaneous
  Country: US (occurrence: None)
  Receive Date: 20160201
  Receipt Date: 20160201
  Transmission Date: 20160526
  Serious: No
  Sender: FDA-Public Use
  Company Number: None

PATIENT

DRUGS (1)
  1. MORPHINE SULFATE ORAL SOLUTION (CONCENTRATE) MORPHINE SULFATE [Suspect]
     Active Substance: MORPHINE SULFATE
     Dosage: 2 MG SOLUTION

REACTIONS (3)
  - Wrong technique in product usage process [None]
  - Incorrect route of drug administration [None]
  - Product sterility lacking [None]
